FAERS Safety Report 26049264 (Version 1)
Quarter: 2025Q4

REPORT INFORMATION
  Report Type: Spontaneous
  Country: US (occurrence: US)
  Receive Date: 20251115
  Receipt Date: 20251115
  Transmission Date: 20260117
  Serious: Yes (Life-Threatening, Other)
  Sender: MACLEODS
  Company Number: US-MACLEODS PHARMA-MAC2025056318

PATIENT

DRUGS (1)
  1. LIDOCAINE [Suspect]
     Active Substance: LIDOCAINE
     Indication: Local anaesthesia
     Dosage: 50 MM OF 2% LIDOCAINE
     Route: 043

REACTIONS (6)
  - Local anaesthetic systemic toxicity [Recovered/Resolved]
  - Lethargy [Recovered/Resolved]
  - Generalised tonic-clonic seizure [Recovered/Resolved]
  - Hypotension [Recovered/Resolved]
  - Confusional state [Recovered/Resolved]
  - Overdose [Unknown]
